FAERS Safety Report 5117186-6 (Version None)
Quarter: 2006Q3

REPORT INFORMATION
  Report Type: 
  Country: None (occurrence: None)
  Receive Date: 20060926
  Receipt Date: 20060914
  Transmission Date: 20061208
  Serious: Yes (Hospitalization)
  Sender: FDA-Public Use
  Company Number: 2006110936

PATIENT
  Age: 47 Year
  Sex: Female

DRUGS (4)
  1. SPIRONOLACTONE [Suspect]
  2. PLAVIX [Concomitant]
  3. VYTORIN [Concomitant]
  4. LASIX [Concomitant]

REACTIONS (2)
  - CORONARY ARTERY STENOSIS [None]
  - MICROANGIOPATHY [None]
